FAERS Safety Report 7812306-4 (Version None)
Quarter: 2011Q4

REPORT INFORMATION
  Report Type: 
  Country: None (occurrence: None)
  Receive Date: 20111013
  Receipt Date: 20111008
  Transmission Date: 20120403
  Serious: Yes (Life-Threatening, Hospitalization)
  Sender: FDA-Public Use
  Company Number: US-BAYER-2011-097605

PATIENT
  Sex: Female

DRUGS (2)
  1. YASMIN [Suspect]
     Route: 048
  2. YAZ [Suspect]
     Dosage: UNK
     Route: 048

REACTIONS (6)
  - GALLBLADDER DISORDER [None]
  - ANHEDONIA [None]
  - HEPATIC LESION [None]
  - ANXIETY [None]
  - INJURY [None]
  - PAIN [None]
